FAERS Safety Report 11787870 (Version 1)
Quarter: 2015Q4

REPORT INFORMATION
  Report Type: Spontaneous
  Country: GB (occurrence: GB)
  Receive Date: 20151130
  Receipt Date: 20151130
  Transmission Date: 20160305
  Serious: Yes (Other)
  Sender: FDA-Public Use
  Company Number: PHHY2015GB151575

PATIENT
  Age: 64 Year
  Sex: Male
  Weight: 56 kg

DRUGS (1)
  1. OMEPRAZOLE. [Suspect]
     Active Substance: OMEPRAZOLE
     Indication: GASTROOESOPHAGEAL REFLUX PROPHYLAXIS
     Dosage: 20 MG, QD
     Route: 065

REACTIONS (5)
  - Constipation [Recovered/Resolved]
  - Dyspepsia [Recovered/Resolved]
  - Product substitution issue [Unknown]
  - Drug ineffective [Unknown]
  - Gastrooesophageal reflux disease [Recovered/Resolved]
